FAERS Safety Report 5056984-4 (Version None)
Quarter: 2006Q3

REPORT INFORMATION
  Report Type: 
  Country: None (occurrence: None)
  Receive Date: 20060721
  Receipt Date: 20060714
  Transmission Date: 20061208
  Serious: Yes (Other)
  Sender: FDA-Public Use
  Company Number: PHFR2006GB02244

PATIENT

DRUGS (1)
  1. EXELON [Suspect]

REACTIONS (2)
  - CONCOMITANT DISEASE AGGRAVATED [None]
  - RENAL FAILURE [None]
